FAERS Safety Report 19949764 (Version 1)
Quarter: 2021Q4

REPORT INFORMATION
  Report Type: Spontaneous
  Country: US (occurrence: US)
  Receive Date: 20211012
  Receipt Date: 20211012
  Transmission Date: 20220303
  Serious: Yes (Death)
  Sender: FDA-Public Use
  Company Number: None

PATIENT
  Age: 81 Year
  Sex: Male
  Weight: 86 kg

DRUGS (1)
  1. BARICITINIB [Suspect]
     Active Substance: BARICITINIB
     Indication: Upper respiratory tract infection
     Route: 048
     Dates: start: 20210916, end: 20210927

REACTIONS (3)
  - Respiratory failure [None]
  - Respiratory depression [None]
  - COVID-19 pneumonia [None]

NARRATIVE: CASE EVENT DATE: 20211002
